FAERS Safety Report 23884626 (Version 1)
Quarter: 2024Q2

REPORT INFORMATION
  Report Type: Spontaneous
  Country: US (occurrence: None)
  Receive Date: 20240522
  Receipt Date: 20240522
  Transmission Date: 20240716
  Serious: Yes (Death, Hospitalization)
  Sender: FDA-Public Use
  Company Number: None

PATIENT
  Sex: Female

DRUGS (1)
  1. TERIPARATIDE [Suspect]
     Active Substance: TERIPARATIDE
     Indication: Osteoporosis
     Dosage: OTHER STRENGTH : 250MCG/ML;?FREQUENCY : DAILY;?
     Route: 058
     Dates: start: 202201

REACTIONS (4)
  - Hepatic failure [None]
  - Cardiac failure [None]
  - Renal failure [None]
  - Pneumonia [None]
